FAERS Safety Report 7396053-1 (Version None)
Quarter: 2011Q1

REPORT INFORMATION
  Report Type: 
  Country: None (occurrence: None)
  Receive Date: 20110301
  Receipt Date: 20101206
  Transmission Date: 20110831
  Serious: Yes (Disabling, Other)
  Sender: FDA-Public Use
  Company Number: ALA_01185_2010

PATIENT
  Sex: Male
  Weight: 67.1324 kg

DRUGS (1)
  1. REGLAN [Suspect]
     Indication: GASTROOESOPHAGEAL REFLUX DISEASE
     Dosage: DF ORAL
     Route: 048
     Dates: start: 20010101, end: 20021201

REACTIONS (3)
  - MOVEMENT DISORDER [None]
  - DYSKINESIA [None]
  - TARDIVE DYSKINESIA [None]
